FAERS Safety Report 16915576 (Version 1)
Quarter: 2019Q4

REPORT INFORMATION
  Report Type: Spontaneous
  Country: FR (occurrence: FR)
  Receive Date: 20191014
  Receipt Date: 20191014
  Transmission Date: 20200122
  Serious: Yes (Other)
  Sender: FDA-Public Use
  Company Number: FR-GALDERMA-FR19061345

PATIENT
  Age: 23 Year
  Sex: Female

DRUGS (2)
  1. TOLEXINE BAILLEUL [Concomitant]
     Indication: ACNE
     Route: 048
     Dates: start: 20181001, end: 20190204
  2. DIFFERIN [Suspect]
     Active Substance: ADAPALENE
     Indication: PRODUCT USED FOR UNKNOWN INDICATION
     Route: 061

REACTIONS (3)
  - Weight decreased [Not Recovered/Not Resolved]
  - Decreased appetite [Not Recovered/Not Resolved]
  - Anorexia nervosa [Not Recovered/Not Resolved]

NARRATIVE: CASE EVENT DATE: 2018
